FAERS Safety Report 21342464 (Version 1)
Quarter: 2022Q3

REPORT INFORMATION
  Report Type: Spontaneous
  Country: US (occurrence: US)
  Receive Date: 20220916
  Receipt Date: 20220916
  Transmission Date: 20221027
  Serious: Yes (Other)
  Sender: FDA-Public Use
  Company Number: US-PFIZER INC-202201160865

PATIENT
  Age: 77 Year
  Sex: Female

DRUGS (2)
  1. INLYTA [Suspect]
     Active Substance: AXITINIB
     Indication: Renal cell carcinoma
     Dosage: 3 DF, 2X/DAY(1MG, WAS TAKING THREE TABLETS TWICE DAILY BY MOUTH)
     Route: 048
     Dates: start: 20210407
  2. INLYTA [Suspect]
     Active Substance: AXITINIB
     Dosage: 2 DF, 2X/DAY (TWO TABLETS EVERY 12 HOURS OR TWICE PER DAY BY MOUTH)
     Route: 048

REACTIONS (1)
  - Diarrhoea [Recovering/Resolving]

NARRATIVE: CASE EVENT DATE: 20220826
